FAERS Safety Report 8254002-8 (Version None)
Quarter: 2012Q2

REPORT INFORMATION
  Report Type: 
  Country: None (occurrence: None)
  Receive Date: 20120402
  Receipt Date: 20120319
  Transmission Date: 20120825
  Serious: No
  Sender: FDA-Public Use
  Company Number: US-AMGEN-USASP2012017686

PATIENT
  Sex: Male

DRUGS (2)
  1. ENBREL [Suspect]
     Indication: RHEUMATOID ARTHRITIS
     Dosage: 50 MG, QWK
     Dates: start: 20110311
  2. METHOTREXATE [Concomitant]
     Dosage: UNK
     Dates: start: 20110201

REACTIONS (5)
  - EOSINOPHIL COUNT INCREASED [None]
  - COUGH [None]
  - UPPER RESPIRATORY TRACT INFECTION [None]
  - MUSCULOSKELETAL STIFFNESS [None]
  - RHEUMATOID ARTHRITIS [None]
